FAERS Safety Report 6595262-9 (Version None)
Quarter: 2010Q1

REPORT INFORMATION
  Report Type: 
  Country: None (occurrence: None)
  Receive Date: 20100212
  Receipt Date: 20100113
  Transmission Date: 20100710
  Serious: Yes (Hospitalization)
  Sender: FDA-Public Use
  Company Number: 005055

PATIENT
  Sex: Female

DRUGS (7)
  1. CDP870 / PLACEBO (INVESTIGATIONAL DRUG) [Suspect]
     Indication: RHEUMATOID ARTHRITIS
     Dosage: (400 MG WEEK 0, 2, 4 THEN 200 MG EVERY 2 WEEKS DURING 10 WEEKS SUBCUTANEOUS)
     Route: 058
  2. CERTOLIZUMAB PEGOL [Suspect]
     Indication: RHEUMATOID ARTHRITIS
     Dosage: (SUBCUTANEOUS)
     Route: 058
  3. ARAVA [Concomitant]
  4. VICODIN [Concomitant]
  5. SIMVASTATIN [Concomitant]
  6. DIOVAN /01319601/ [Concomitant]
  7. AMLODIPINE [Concomitant]

REACTIONS (2)
  - DEEP VEIN THROMBOSIS [None]
  - PULMONARY EMBOLISM [None]
